FAERS Safety Report 13662181 (Version 4)
Quarter: 2017Q3

REPORT INFORMATION
  Report Type: Spontaneous
  Country: KR (occurrence: KR)
  Receive Date: 20170616
  Receipt Date: 20170825
  Transmission Date: 20171127
  Serious: No
  Sender: FDA-Public Use
  Company Number: KR-009507513-1506KOR010580

PATIENT
  Age: 58 Year
  Sex: Female
  Weight: 39.5 kg

DRUGS (15)
  1. ILDONG ARONAMIN C PLUS [Concomitant]
     Indication: PROPHYLAXIS
     Dosage: 1 DF, QD
     Route: 048
     Dates: start: 20130516
  2. EMEND (FOSAPREPITANT DIMEGLUMINE) [Suspect]
     Active Substance: FOSAPREPITANT DIMEGLUMINE
     Indication: PROPHYLAXIS OF NAUSEA AND VOMITING
     Dosage: 150 MG, ONCE
     Route: 042
     Dates: start: 20150603, end: 20150603
  3. BARACLUDE [Concomitant]
     Active Substance: ENTECAVIR
     Indication: HEPATITIS
     Dosage: 0.5 MG, QD
     Route: 048
     Dates: start: 20130519
  4. CISPLAN [Concomitant]
     Active Substance: CISPLATIN
     Indication: HEPATOCELLULAR CARCINOMA
     Dosage: STRENGTH: 10MG/20ML; 29 MG, ONCE, ROUTE: TRANSARTERIAL, CYCLE 10
     Route: 050
     Dates: start: 20150603, end: 20150603
  5. CISPLAN [Concomitant]
     Active Substance: CISPLATIN
     Indication: HEPATOCELLULAR CARCINOMA
     Dosage: STRENGTH: 50MG/100ML; 50 MG, ONCE; ROUTE: TRANSARTERIAL, CYCLE 10
     Route: 050
     Dates: start: 20150603, end: 20150603
  6. ALOXI [Concomitant]
     Active Substance: PALONOSETRON HYDROCHLORIDE
     Indication: PREMEDICATION
     Dosage: 0.25 MG, ONCE
     Route: 042
     Dates: start: 20150603, end: 20150603
  7. URSA TABLETS [Concomitant]
     Indication: PROPHYLAXIS
     Dosage: 200 MG, BID
     Route: 048
     Dates: start: 20130516
  8. IRCODON [Concomitant]
     Active Substance: OXYCODONE HYDROCHLORIDE
     Indication: HEPATOCELLULAR CARCINOMA
     Dosage: 5 MG, QD
     Route: 048
     Dates: start: 20150602, end: 20150602
  9. ALDACTONE [Concomitant]
     Active Substance: SPIRONOLACTONE
     Indication: PROPHYLAXIS
     Dosage: 25 MG, BID
     Route: 048
     Dates: start: 20140923
  10. DEXAMETHASONE SODIUM PHOSPHATE. [Concomitant]
     Active Substance: DEXAMETHASONE SODIUM PHOSPHATE
     Indication: HEPATOCELLULAR CARCINOMA
     Dosage: STRENGTH: 5 MG/ML, 5 MG, ONCE
     Route: 042
     Dates: start: 20150603, end: 20150603
  11. DEXTROSE. [Concomitant]
     Active Substance: DEXTROSE
     Indication: FLUID REPLACEMENT
     Dosage: 1000ML, BID
     Route: 042
     Dates: start: 20150603, end: 20150603
  12. PETHIDINE HCL GUJU [Concomitant]
     Indication: PREMEDICATION
     Dosage: STRENGTH: 50MG/ML, 50 MG, ONCE
     Route: 030
     Dates: start: 20150603, end: 20150603
  13. NEXIUM [Concomitant]
     Active Substance: ESOMEPRAZOLE MAGNESIUM
     Indication: PROPHYLAXIS AGAINST GASTROINTESTINAL ULCER
     Dosage: 40 MG, ONCE
     Route: 042
     Dates: start: 20150603, end: 20150603
  14. NEXIUM [Concomitant]
     Active Substance: ESOMEPRAZOLE MAGNESIUM
     Indication: PROPHYLAXIS
     Dosage: 20 MG, QD
     Route: 048
     Dates: start: 20140819
  15. LASIX [Concomitant]
     Active Substance: FUROSEMIDE
     Indication: PROPHYLAXIS
     Dosage: 40 MG, BID
     Route: 048
     Dates: start: 20140923

REACTIONS (1)
  - Drug ineffective [Unknown]

NARRATIVE: CASE EVENT DATE: 201506
